FAERS Safety Report 7304575-4 (Version None)
Quarter: 2011Q1

REPORT INFORMATION
  Report Type: 
  Country: None (occurrence: None)
  Receive Date: 20110222
  Receipt Date: 20080410
  Transmission Date: 20110831
  Serious: Yes (Hospitalization, Other)
  Sender: FDA-Public Use
  Company Number: US-RANBAXY-2008US-41649

PATIENT

DRUGS (14)
  1. MARCUMAR [Concomitant]
     Indication: THROMBOSIS PROPHYLAXIS
     Dosage: UNK, UNK
     Route: 048
  2. RISPERDAL [Interacting]
     Indication: DEMENTIA
     Dosage: 1-1.5 MG PER DAY, UNK
     Route: 048
     Dates: start: 20060921, end: 20061004
  3. DIGIMERK [Concomitant]
     Indication: PRODUCT USED FOR UNKNOWN INDICATION
     Dosage: 0.05 MG, 1 IN 1 DAY
     Route: 048
     Dates: start: 20060921, end: 20061014
  4. EUNERPAN [Suspect]
     Dosage: 100 MG, QD
     Route: 048
     Dates: start: 20060922, end: 20060922
  5. EUNERPAN [Suspect]
     Dosage: 50 MG, QD
     Route: 048
     Dates: start: 20060927, end: 20061014
  6. RISPERDAL [Interacting]
     Dosage: 0.75 MG, UNK
     Route: 048
     Dates: start: 20061006, end: 20061010
  7. SORTIS [Suspect]
     Indication: PRODUCT USED FOR UNKNOWN INDICATION
     Dosage: 20 MG, QD
     Route: 048
     Dates: start: 20060921, end: 20061014
  8. MEMANTINE HCL [Concomitant]
     Dosage: 10 MG, UNK
     Route: 048
     Dates: start: 20061013, end: 20061014
  9. RISPERDAL [Interacting]
     Dosage: 0.50 MG, UNK
     Route: 048
     Dates: start: 20061011, end: 20061014
  10. RISPERDAL [Interacting]
     Dosage: 1 MG, UNK
     Route: 048
     Dates: start: 20061005, end: 20061005
  11. LORZAR [Concomitant]
     Indication: HYPERTENSION
     Dosage: 50 MG, 1 IN 1 DAY
     Route: 048
     Dates: start: 20060921, end: 20061014
  12. ISOPTIN SR [Suspect]
     Indication: HYPERTENSION
     Dosage: 240 MG, QD
     Route: 048
     Dates: start: 20060921, end: 20061014
  13. EUNERPAN [Suspect]
     Indication: DEMENTIA
     Dosage: 75 MG, QD
     Route: 048
     Dates: start: 20060921, end: 20060921
  14. MEMANTINE HCL [Concomitant]
     Indication: PRODUCT USED FOR UNKNOWN INDICATION
     Dosage: 05 MG, UNK
     Route: 048
     Dates: start: 20060927, end: 20061012

REACTIONS (3)
  - DRUG INTERACTION [None]
  - DYSTONIA [None]
  - TORTICOLLIS [None]
